FAERS Safety Report 16001345 (Version 2)
Quarter: 2019Q1

REPORT INFORMATION
  Report Type: Spontaneous
  Country: US (occurrence: US)
  Receive Date: 20190225
  Receipt Date: 20190313
  Transmission Date: 20190418
  Serious: Yes (Other)
  Sender: FDA-Public Use
  Company Number: US-PFIZER INC-2019079970

PATIENT
  Age: 52 Year
  Sex: Female

DRUGS (2)
  1. MAGNESIUM SULFATE. [Suspect]
     Active Substance: MAGNESIUM SULFATE
     Dosage: HEAPING TEASPOONFUL IN ABOUT ONE THIRD OF A GLASS OF HOT WATER, UNK
     Route: 048
  2. MAGNESIUM SULFATE. [Suspect]
     Active Substance: MAGNESIUM SULFATE
     Indication: DIARRHOEA
     Dosage: TWO DRACHMS IN A HALF GLASS OF HOT WATER, UNK
     Route: 048

REACTIONS (2)
  - Poisoning [Recovered/Resolved]
  - Cardiotoxicity [Recovered/Resolved]
